FAERS Safety Report 9165457 (Version 2)
Quarter: 2013Q2

REPORT INFORMATION
  Report Type: Report from Study
  Country: JP (occurrence: JP)
  Receive Date: 20130315
  Receipt Date: 20130410
  Transmission Date: 20140414
  Serious: No
  Sender: FDA-Public Use
  Company Number: JP-SANOFI-AVENTIS-2013SA025726

PATIENT
  Sex: Female
  Weight: 40.2 kg

DRUGS (14)
  1. LANTUS SOLOSTAR [Suspect]
     Indication: TYPE 2 DIABETES MELLITUS
     Dosage: DOSE:4 UNIT(S)
     Route: 058
     Dates: start: 20120911, end: 20121016
  2. LANTUS SOLOSTAR [Suspect]
     Indication: TYPE 2 DIABETES MELLITUS
     Dosage: DOSE:6 UNIT(S)
     Route: 058
     Dates: start: 20121017, end: 20121219
  3. SOLOSTAR [Suspect]
     Indication: DEVICE THERAPY
     Dates: start: 20120911, end: 20121016
  4. SOLOSTAR [Suspect]
     Indication: DEVICE THERAPY
     Dates: start: 20121017, end: 20121219
  5. AMARYL [Concomitant]
     Indication: TYPE 2 DIABETES MELLITUS
     Route: 048
     Dates: start: 20121016, end: 20121218
  6. AMARYL [Concomitant]
     Indication: TYPE 2 DIABETES MELLITUS
     Route: 048
     Dates: end: 20121015
  7. VICTOZA [Concomitant]
     Indication: TYPE 2 DIABETES MELLITUS
     Route: 058
     Dates: start: 20121222
  8. VICTOZA [Concomitant]
     Indication: TYPE 2 DIABETES MELLITUS
     Route: 058
     Dates: start: 20121220, end: 20121221
  9. KINEDAK [Concomitant]
     Route: 048
  10. DEPAS [Concomitant]
     Route: 048
  11. CRESTOR [Concomitant]
     Route: 048
  12. LENDORMIN [Concomitant]
     Route: 048
     Dates: start: 20121218
  13. LENDORMIN [Concomitant]
     Route: 048
     Dates: end: 20121217
  14. ARICEPT [Concomitant]
     Route: 048
     Dates: start: 20121120

REACTIONS (1)
  - No adverse event [Unknown]
